FAERS Safety Report 20429512 (Version 1)
Quarter: 2022Q1

REPORT INFORMATION
  Report Type: Spontaneous
  Country: CN (occurrence: CN)
  Receive Date: 20220204
  Receipt Date: 20220204
  Transmission Date: 20220423
  Serious: Yes (Hospitalization, Other)
  Sender: FDA-Public Use
  Company Number: CN-GLAXOSMITHKLINE-CN2022APC015501

PATIENT
  Age: 39 Year
  Sex: Female
  Weight: 57 kg

DRUGS (1)
  1. LAMOTRIGINE [Suspect]
     Active Substance: LAMOTRIGINE
     Indication: Generalised tonic-clonic seizure
     Dosage: 25 MG, BID
     Route: 048
     Dates: start: 20220111, end: 20220118

REACTIONS (14)
  - Drug hypersensitivity [Recovering/Resolving]
  - Respiratory tract infection [Recovering/Resolving]
  - Drug eruption [Recovering/Resolving]
  - Erythema [Recovering/Resolving]
  - Papule [Recovering/Resolving]
  - Pruritus [Recovering/Resolving]
  - Pyrexia [Recovering/Resolving]
  - Cough [Recovering/Resolving]
  - Rash papular [Recovering/Resolving]
  - Vulvar erosion [Recovering/Resolving]
  - Proctalgia [Recovering/Resolving]
  - Condition aggravated [Recovering/Resolving]
  - Vulvovaginal pain [Recovering/Resolving]
  - Anal erosion [Recovering/Resolving]

NARRATIVE: CASE EVENT DATE: 20220118
